FAERS Safety Report 25191053 (Version 2)
Quarter: 2025Q2

REPORT INFORMATION
  Report Type: Spontaneous
  Country: GB (occurrence: GB)
  Receive Date: 20250411
  Receipt Date: 20250528
  Transmission Date: 20250717
  Serious: Yes (Hospitalization)
  Sender: MYLAN
  Company Number: GB-MYLANLABS-2025M1030544

PATIENT
  Sex: Male

DRUGS (4)
  1. CLOZARIL [Suspect]
     Active Substance: CLOZAPINE
     Indication: Schizophrenia
  2. CLOZARIL [Suspect]
     Active Substance: CLOZAPINE
     Dosage: UNK, BID (150MG OM + 425MG ON)
     Dates: start: 20241030
  3. ARIPIPRAZOLE [Suspect]
     Active Substance: ARIPIPRAZOLE
     Indication: Schizophrenia
  4. OLANZAPINE [Concomitant]
     Active Substance: OLANZAPINE

REACTIONS (5)
  - Mental impairment [Unknown]
  - Schizophrenia [Unknown]
  - Malaise [Unknown]
  - Therapy cessation [Unknown]
  - Off label use [Unknown]
